FAERS Safety Report 20792485 (Version 2)
Quarter: 2023Q1

REPORT INFORMATION
  Report Type: Other
  Country: JP (occurrence: JP)
  Receive Date: 20220506
  Receipt Date: 20230303
  Transmission Date: 20230418
  Serious: Yes (Other)
  Sender: FDA-Public Use
  Company Number: JP-CHUGAI-2022016004

PATIENT
  Age: 73 Year
  Sex: Male
  Weight: 58.9 kg

DRUGS (9)
  1. ATEZOLIZUMAB [Suspect]
     Active Substance: ATEZOLIZUMAB
     Indication: Small cell lung cancer extensive stage
     Dosage: 1200 MILLIGRAM, SINGLE
     Route: 041
     Dates: start: 20210803, end: 20210803
  2. ATEZOLIZUMAB [Suspect]
     Active Substance: ATEZOLIZUMAB
     Dosage: 1200 MILLIGRAM, ONCE/4WEEKS
     Route: 041
     Dates: start: 20210901, end: 20210928
  3. ATEZOLIZUMAB [Suspect]
     Active Substance: ATEZOLIZUMAB
     Dosage: 1200 MILLIGRAM. ON 14/JAN/2022, HE RECEIVED MOST RECENT DOSE OF IV ATEZOLIZUMAB INJECTION 1200 MG.
     Route: 041
     Dates: start: 20211026
  4. CARBOPLATIN [Suspect]
     Active Substance: CARBOPLATIN
     Indication: Small cell lung cancer extensive stage
     Dosage: 374 MILLIGRAM, SINGLE
     Route: 041
     Dates: start: 20210803, end: 20210803
  5. CARBOPLATIN [Suspect]
     Active Substance: CARBOPLATIN
     Dosage: 291 MILLIGRAM, ONCE/4WEEKS
     Route: 041
     Dates: start: 20210901, end: 20210928
  6. CARBOPLATIN [Suspect]
     Active Substance: CARBOPLATIN
     Dosage: 291 MILLIGRAM, SINGLE
     Route: 041
     Dates: start: 20211026, end: 20211026
  7. ETOPOSIDE [Suspect]
     Active Substance: ETOPOSIDE
     Indication: Small cell lung cancer extensive stage
     Dosage: 122 MILLIGRAM, QD
     Route: 041
     Dates: start: 20210803, end: 20210805
  8. ETOPOSIDE [Suspect]
     Active Substance: ETOPOSIDE
     Dosage: 122 MILLIGRAM, ONCE/4WEEKS
     Route: 041
     Dates: start: 20210901, end: 20210928
  9. ETOPOSIDE [Suspect]
     Active Substance: ETOPOSIDE
     Dosage: 122 MILLIGRAM. ON 28/OCT/2021, HE RECEIVED MOST RECENT DOSE OF IV ETOPOSIDE INJECTION 122 MG.
     Route: 041
     Dates: start: 20211026

REACTIONS (7)
  - Neutrophil count decreased [Recovered/Resolved]
  - White blood cell count decreased [Recovered/Resolved]
  - Erythema multiforme [Recovered/Resolved]
  - Constipation [Recovering/Resolving]
  - Platelet count decreased [Recovered/Resolved]
  - Haemorrhoids [Recovered/Resolved]
  - Alanine aminotransferase increased [Recovered/Resolved]

NARRATIVE: CASE EVENT DATE: 20210806
